FAERS Safety Report 4662740-9 (Version None)
Quarter: 2005Q2

REPORT INFORMATION
  Report Type: 
  Country: None (occurrence: None)
  Receive Date: 20050516
  Receipt Date: 20050512
  Transmission Date: 20051028
  Serious: Yes (Life-Threatening)
  Sender: FDA-Public Use
  Company Number: FR-GLAXOSMITHKLINE-B0380844A

PATIENT
  Age: 60 Year
  Sex: Female

DRUGS (6)
  1. AUGMENTIN [Suspect]
     Indication: ILL-DEFINED DISORDER
     Dosage: 2TAB SINGLE DOSE
     Route: 048
     Dates: start: 20050311, end: 20050311
  2. TAMOXIFEN CITRATE [Concomitant]
     Route: 065
  3. TEMESTA [Concomitant]
     Route: 065
  4. TOCO [Concomitant]
     Route: 065
  5. DIOSMINE [Concomitant]
     Route: 065
  6. ELISOR [Concomitant]
     Route: 065

REACTIONS (6)
  - ANAPHYLACTIC SHOCK [None]
  - BLISTER [None]
  - BLOOD PRESSURE IMMEASURABLE [None]
  - DIZZINESS [None]
  - FACE OEDEMA [None]
  - MALAISE [None]
